FAERS Safety Report 8708010 (Version 4)
Quarter: 2012Q4

REPORT INFORMATION
  Report Type: Report from Study
  Country: JP (occurrence: JP)
  Receive Date: 20120806
  Receipt Date: 20121008
  Transmission Date: 20130627
  Serious: Yes (Hospitalization)
  Sender: FDA-Public Use
  Company Number: JP-CELGENEUS-087-21880-12072849

PATIENT
  Age: 76 Year
  Sex: Female
  Weight: 33 kg

DRUGS (8)
  1. REVLIMID [Suspect]
     Indication: MULTIPLE MYELOMA
     Dosage: 25 Milligram
     Route: 048
     Dates: start: 20110706
  2. REVLIMID [Suspect]
     Dosage: 15 Milligram
     Route: 048
     Dates: start: 20110803
  3. REVLIMID [Suspect]
     Dosage: 10 Milligram
     Route: 048
     Dates: start: 20120606, end: 20120703
  4. LENADEX [Suspect]
     Indication: MULTIPLE MYELOMA
     Route: 048
     Dates: start: 20110706, end: 20120703
  5. VELCADE [Concomitant]
     Indication: MULTIPLE MYELOMA
     Dosage: 1.8 Milligram
     Route: 041
     Dates: start: 20110706, end: 20120703
  6. LIVALO [Concomitant]
     Indication: HYPERLIPIDAEMIA
     Dosage: 1 Milligram
     Route: 048
     Dates: start: 200904
  7. BAKTAR [Concomitant]
     Indication: PROPHYLAXIS
     Dosage: 1 Tablet
     Route: 048
     Dates: start: 200904
  8. CELECOX [Concomitant]
     Indication: PAIN MANAGEMENT
     Dosage: 200 Milligram
     Route: 048
     Dates: start: 200904

REACTIONS (1)
  - Fanconi syndrome acquired [Not Recovered/Not Resolved]
